FAERS Safety Report 24594152 (Version 1)
Quarter: 2024Q4

REPORT INFORMATION
  Report Type: Spontaneous
  Country: ES (occurrence: ES)
  Receive Date: 20241108
  Receipt Date: 20241108
  Transmission Date: 20250114
  Serious: Yes (Hospitalization)
  Sender: RANBAXY
  Company Number: ES-AEMPS-1574385

PATIENT
  Age: 72 Year
  Sex: Male

DRUGS (6)
  1. CIPROFLOXACIN [Suspect]
     Active Substance: CIPROFLOXACIN
     Indication: Bacteraemia
     Dosage: 1500 MILLIGRAM, DAILY
     Route: 048
     Dates: start: 20240703, end: 20240720
  2. PREDNISONE [Suspect]
     Active Substance: PREDNISONE
     Indication: Product used for unknown indication
     Dosage: 15 MILLIGRAM, DAILY
     Route: 048
     Dates: start: 20240705, end: 20240720
  3. METAMIZOLE [Suspect]
     Active Substance: METAMIZOLE
     Indication: Product used for unknown indication
     Dosage: 1725 MILLIGRAM, DAILY
     Route: 048
     Dates: start: 20240609, end: 20240720
  4. TEDIZOLID [Suspect]
     Active Substance: TEDIZOLID
     Indication: Bacteraemia
     Dosage: 200 MILLIGRAM, DAILY
     Route: 048
     Dates: start: 20240703, end: 20240805
  5. PANCRELIPASE [Concomitant]
     Active Substance: PANCRELIPASE
     Indication: Product used for unknown indication
     Dosage: 0 INTERNATIONAL UNIT, DAILY
     Route: 048
     Dates: start: 20240625
  6. OMEPRAZOLE [Concomitant]
     Active Substance: OMEPRAZOLE
     Indication: Product used for unknown indication
     Dosage: 20 MILLIGRAM, DAILY
     Route: 048
     Dates: start: 20240521

REACTIONS (3)
  - Rash maculo-papular [Recovered/Resolved]
  - Hypertransaminasaemia [Recovered/Resolved]
  - Eosinophilia [Recovered/Resolved]

NARRATIVE: CASE EVENT DATE: 20240717
